FAERS Safety Report 7675959-X (Version None)
Quarter: 2011Q3

REPORT INFORMATION
  Report Type: 
  Country: None (occurrence: None)
  Receive Date: 20110811
  Receipt Date: 20110802
  Transmission Date: 20111222
  Serious: No
  Sender: FDA-Public Use
  Company Number: US-BIOGENIDEC-2011BI012644

PATIENT
  Sex: Female

DRUGS (1)
  1. TYSABRI [Suspect]
     Indication: MULTIPLE SCLEROSIS
     Route: 042
     Dates: start: 20110302

REACTIONS (6)
  - VOMITING [None]
  - HYPERTENSION [None]
  - ORAL PUSTULE [None]
  - TRIGEMINAL NEURALGIA [None]
  - HEADACHE [None]
  - NAUSEA [None]
